FAERS Safety Report 6357970-4 (Version None)
Quarter: 2009Q3

REPORT INFORMATION
  Report Type: 
  Country: None (occurrence: None)
  Receive Date: 20090911
  Receipt Date: 20090826
  Transmission Date: 20100115
  Serious: Yes (Life-Threatening, Hospitalization)
  Sender: FDA-Public Use
  Company Number: UTC-000645

PATIENT
  Age: 58 Year
  Sex: Male

DRUGS (2)
  1. REMODULIN [Suspect]
     Indication: PULMONARY ARTERY WALL HYPERTROPHY
     Dosage: 15 MG (15 MG,1 IN 1 D)
     Dates: start: 20090401
  2. SILDENAFIL CITRATE [Concomitant]

REACTIONS (5)
  - CORONARY ARTERY ANEURYSM [None]
  - CORONARY ARTERY OCCLUSION [None]
  - CORONARY ARTERY THROMBOSIS [None]
  - EJECTION FRACTION DECREASED [None]
  - MYOCARDIAL INFARCTION [None]
